FAERS Safety Report 5707872-9 (Version None)
Quarter: 2008Q2

REPORT INFORMATION
  Report Type: 
  Country: None (occurrence: None)
  Receive Date: 20080417
  Receipt Date: 20080417
  Transmission Date: 20081010
  Serious: Yes (Hospitalization, Other)
  Sender: FDA-Public Use
  Company Number: None

PATIENT
  Sex: Female
  Weight: 68.0396 kg

DRUGS (2)
  1. HEPARIN [Suspect]
     Indication: ANTIPHOSPHOLIPID ANTIBODIES
     Dosage: 5000 U BID SQ
     Route: 058
     Dates: start: 20071109
  2. HEPARIN [Suspect]
     Indication: ATRIAL SEPTAL DEFECT
     Dosage: 5000 U BID SQ
     Route: 058
     Dates: start: 20071109

REACTIONS (3)
  - PHARMACEUTICAL PRODUCT COMPLAINT [None]
  - TRANSIENT ISCHAEMIC ATTACK [None]
  - TREATMENT FAILURE [None]
